FAERS Safety Report 4893085-X (Version None)
Quarter: 2005Q4

REPORT INFORMATION
  Report Type: 
  Country: None (occurrence: None)
  Receive Date: 20051220
  Receipt Date: 20050420
  Transmission Date: 20060501
  Serious: Yes (Hospitalization)
  Sender: FDA-Public Use
  Company Number: PHEH2004US12827

PATIENT
  Age: 63 Year
  Sex: Male

DRUGS (1)
  1. AREDIA [Suspect]
     Indication: MULTIPLE MYELOMA
     Dosage: EVERY 4 WEEKS, INFUSION
     Dates: start: 20010301

REACTIONS (2)
  - FEELING ABNORMAL [None]
  - PYREXIA [None]
